FAERS Safety Report 7200626-6 (Version None)
Quarter: 2010Q4

REPORT INFORMATION
  Report Type: 
  Country: None (occurrence: None)
  Receive Date: 20101215
  Receipt Date: 20101202
  Transmission Date: 20110411
  Serious: Yes (Hospitalization)
  Sender: FDA-Public Use
  Company Number: UTC-002954

PATIENT
  Age: 54 Year
  Sex: Female
  Weight: 70.4 kg

DRUGS (2)
  1. REMODULIN [Suspect]
     Indication: PULMONARY ARTERIAL HYPERTENSION
     Dosage: 135.36 UG/KG (0.094 UG/KG,1 IN 1 MIN),SUBCUTANEOUS
     Route: 058
     Dates: start: 20071201
  2. DIURETICS (DIURETICS) [Concomitant]

REACTIONS (2)
  - CATHETER SITE INFECTION [None]
  - PSEUDOMONAS TEST POSITIVE [None]
